FAERS Safety Report 24091686 (Version 1)
Quarter: 2024Q3

REPORT INFORMATION
  Report Type: Spontaneous
  Country: US (occurrence: US)
  Receive Date: 20240715
  Receipt Date: 20240715
  Transmission Date: 20241017
  Serious: No
  Sender: PERRIGO
  Company Number: US-PERRIGO-23US013705

PATIENT
  Sex: Female

DRUGS (1)
  1. MINOXIDIL [Suspect]
     Active Substance: MINOXIDIL
     Indication: Alopecia
     Dosage: 1 ML, BID
     Route: 061
     Dates: start: 20230930, end: 2023

REACTIONS (3)
  - Condition aggravated [Unknown]
  - Off label use [Recovered/Resolved]
  - Product administered at inappropriate site [Recovered/Resolved]

NARRATIVE: CASE EVENT DATE: 20230101
